FAERS Safety Report 16759630 (Version 3)
Quarter: 2024Q1

REPORT INFORMATION
  Report Type: Spontaneous
  Country: US (occurrence: US)
  Receive Date: 20190830
  Receipt Date: 20240103
  Transmission Date: 20240409
  Serious: Yes (Other)
  Sender: FDA-Public Use
  Company Number: US-PFIZER INC-2017342607

PATIENT
  Age: 55 Year
  Sex: Female

DRUGS (3)
  1. LEVOXYL [Suspect]
     Active Substance: LEVOTHYROXINE SODIUM
     Indication: Autoimmune thyroiditis
     Dosage: 0.88 MG ONCE A DAY (WITHOUT FOOD FOR AN HOUR AFTER TAKING IT)
     Dates: start: 201711
  2. LEVOXYL [Suspect]
     Active Substance: LEVOTHYROXINE SODIUM
     Indication: Hypothyroidism
     Dosage: 0.5 DF, 1X/DAY (1/2 PILL ONCE DAILY)
  3. ESCITALOPRAM [Concomitant]
     Active Substance: ESCITALOPRAM OXALATE
     Dosage: UNK

REACTIONS (4)
  - Cardiac flutter [Unknown]
  - Hyperthyroidism [Recovering/Resolving]
  - Drug ineffective [Unknown]
  - Weight increased [Unknown]
